FAERS Safety Report 7349768-5 (Version None)
Quarter: 2011Q1

REPORT INFORMATION
  Report Type: 
  Country: None (occurrence: None)
  Receive Date: 20110314
  Receipt Date: 20110309
  Transmission Date: 20110831
  Serious: Yes (Death)
  Sender: FDA-Public Use
  Company Number: CL-BRISTOL-MYERS SQUIBB COMPANY-15382922

PATIENT
  Age: 70 Year
  Sex: Male
  Weight: 67 kg

DRUGS (5)
  1. CETUXIMAB [Suspect]
     Indication: GASTROOESOPHAGEAL CANCER
     Dosage: STRENGTH:5MG/ML RECENT INF(5TH):04NOV10
     Route: 042
     Dates: start: 20101007, end: 20101104
  2. CISPLATIN [Suspect]
     Indication: GASTROOESOPHAGEAL CANCER
     Dosage: RECENT INF:27OCT10 DAY 1 OF CYCLE
     Route: 042
     Dates: start: 20101007, end: 20101027
  3. XELODA [Suspect]
     Indication: GASTROOESOPHAGEAL CANCER
     Dosage: RECENTDOSE:07NOV10 ON DAY 1-15
     Route: 048
     Dates: start: 20101007, end: 20101107
  4. ATENOLOL [Concomitant]
     Route: 048
     Dates: start: 19900101
  5. LOSARTAN [Concomitant]
     Route: 048
     Dates: start: 20090101

REACTIONS (1)
  - SUDDEN DEATH [None]
